FAERS Safety Report 16177082 (Version 2)
Quarter: 2019Q3

REPORT INFORMATION
  Report Type: Spontaneous
  Country: IN (occurrence: IN)
  Receive Date: 20190409
  Receipt Date: 20190920
  Transmission Date: 20191004
  Serious: Yes (Other)
  Sender: FDA-Public Use
  Company Number: IN-SUN PHARMACEUTICAL INDUSTRIES LTD-2019R1-204722

PATIENT
  Age: 38 Year
  Sex: Male

DRUGS (1)
  1. TOPIRAMATE. [Suspect]
     Active Substance: TOPIRAMATE
     Indication: ALCOHOLISM
     Dosage: 100 MILLIGRAM, DAILY
     Route: 065

REACTIONS (2)
  - Memory impairment [Recovering/Resolving]
  - Cognitive disorder [Recovering/Resolving]
